FAERS Safety Report 16134334 (Version 1)
Quarter: 2019Q1

REPORT INFORMATION
  Report Type: Spontaneous
  Country: FR (occurrence: FR)
  Receive Date: 20190329
  Receipt Date: 20190329
  Transmission Date: 20190418
  Serious: Yes (Hospitalization)
  Sender: FDA-Public Use
  Company Number: FR-TEVA-2019-FR-1029000

PATIENT
  Age: 62 Year
  Sex: Female
  Weight: 90 kg

DRUGS (13)
  1. DIFFU K [Concomitant]
     Active Substance: POTASSIUM CHLORIDE
  2. CELESTENE [Concomitant]
     Active Substance: BETAMETHASONE SODIUM PHOSPHATE
  3. RAMIPRIL. [Concomitant]
     Active Substance: RAMIPRIL
  4. XYLOCAINE [Suspect]
     Active Substance: LIDOCAINE HYDROCHLORIDE
     Indication: ANGIOCARDIOGRAM
     Route: 058
     Dates: start: 20190206, end: 20190206
  5. BETAMETHASONE. [Concomitant]
     Active Substance: BETAMETHASONE
  6. ALDACTONE [Concomitant]
     Active Substance: SPIRONOLACTONE
  7. HEPARINE SODIQUE [Suspect]
     Active Substance: HEPARIN SODIUM
     Indication: THROMBOSIS PROPHYLAXIS
     Dosage: 3000 IU (INTERNATIONAL UNIT)
     Route: 051
     Dates: start: 20190206, end: 20190206
  8. AMOXICILLINE [Suspect]
     Active Substance: AMOXICILLIN
     Indication: LUNG DISORDER
     Dosage: 3 DOSAGE FORMS DAILY;
     Route: 048
     Dates: start: 20190129, end: 20190206
  9. VIALEBEX [Concomitant]
     Active Substance: ALBUMIN HUMAN
  10. VISIPAQUE [Suspect]
     Active Substance: IODIXANOL
     Indication: ANGIOCARDIOGRAM
     Dosage: 30 ML
     Route: 013
     Dates: start: 20190206, end: 20190206
  11. ISOPTINE [Suspect]
     Active Substance: VERAPAMIL HYDROCHLORIDE
     Indication: ANGIOCARDIOGRAM
     Route: 051
     Dates: start: 20190206, end: 20190206
  12. BISOPROLOL (HEMIFUMARATE DE) [Concomitant]
     Active Substance: BISOPROLOL FUMARATE
  13. FUROSEMIDE. [Concomitant]
     Active Substance: FUROSEMIDE

REACTIONS (2)
  - Eosinophilia [Recovered/Resolved]
  - Pruritus [Recovered/Resolved]

NARRATIVE: CASE EVENT DATE: 20190206
